FAERS Safety Report 6947682-8 (Version None)
Quarter: 2010Q3

REPORT INFORMATION
  Report Type: 
  Country: None (occurrence: None)
  Receive Date: 20100828
  Receipt Date: 20090921
  Transmission Date: 20110219
  Serious: No
  Sender: FDA-Public Use
  Company Number: US-ABBOTT-09P-163-0598860-00

PATIENT
  Sex: Male
  Weight: 93.07 kg

DRUGS (3)
  1. NIASPAN [Suspect]
     Indication: HIGH DENSITY LIPOPROTEIN DECREASED
     Dates: start: 20090901, end: 20090901
  2. NIASPAN [Suspect]
     Dates: start: 20090921
  3. PROPRANOLOL [Concomitant]
     Indication: ESSENTIAL TREMOR

REACTIONS (2)
  - FLUSHING [None]
  - INCORRECT DRUG ADMINISTRATION DURATION [None]
